FAERS Safety Report 21568162 (Version 1)
Quarter: 2022Q4

REPORT INFORMATION
  Report Type: Report from Study
  Country: JP (occurrence: None)
  Receive Date: 20221108
  Receipt Date: 20221108
  Transmission Date: 20230113
  Serious: Yes (Hospitalization)
  Sender: FDA-Public Use
  Company Number: JP-Merck Healthcare KGaA-9278851

PATIENT
  Age: 81 Year
  Sex: Male
  Weight: 72 kg

DRUGS (11)
  1. BAVENCIO [Suspect]
     Active Substance: AVELUMAB
     Indication: Transitional cell carcinoma
     Dosage: ADMINISTRATION RATE: 250 ML/HOUR.
     Route: 041
     Dates: start: 20211028, end: 20211028
  2. BAVENCIO [Suspect]
     Active Substance: AVELUMAB
     Dosage: ADMINISTRATION RATE: 125 ML/HOUR.
     Route: 041
     Dates: start: 20211112
  3. BAVENCIO [Suspect]
     Active Substance: AVELUMAB
     Dosage: ADMINISTRATION RATE: 125 ML/HOUR.
     Route: 041
     Dates: start: 20211214
  4. BAVENCIO [Suspect]
     Active Substance: AVELUMAB
     Dosage: DOSING RATE: 700 MG/250 ML/HR
     Route: 041
     Dates: start: 20220201
  5. BAVENCIO [Suspect]
     Active Substance: AVELUMAB
     Dosage: DOSING RATE: 250 ML/HR
     Route: 041
     Dates: start: 20221020
  6. BAVENCIO [Suspect]
     Active Substance: AVELUMAB
     Dosage: DOSING RATE: 700 MG/250 ML/HR
     Route: 041
     Dates: start: 20221020, end: 20221020
  7. SYMBICORT [Suspect]
     Active Substance: BUDESONIDE\FORMOTEROL FUMARATE DIHYDRATE
     Indication: Product used for unknown indication
     Dosage: 60 DOSES
  8. ACETAMINOPHEN [Concomitant]
     Active Substance: ACETAMINOPHEN
     Indication: Premedication
     Route: 048
     Dates: start: 20211028, end: 20220111
  9. ACETAMINOPHEN [Concomitant]
     Active Substance: ACETAMINOPHEN
     Route: 048
     Dates: start: 20220201, end: 20221020
  10. DIPHENHYDRAMINE [Concomitant]
     Active Substance: DIPHENHYDRAMINE
     Indication: Premedication
     Route: 048
     Dates: start: 20211028, end: 20220111
  11. DIPHENHYDRAMINE [Concomitant]
     Active Substance: DIPHENHYDRAMINE
     Route: 048
     Dates: start: 20220201, end: 20221020

REACTIONS (5)
  - Adrenal disorder [Recovered/Resolved]
  - Pyelonephritis acute [Recovered/Resolved]
  - Hypothyroidism [Recovered/Resolved]
  - Infusion related reaction [Recovered/Resolved]
  - Diarrhoea [Recovered/Resolved]

NARRATIVE: CASE EVENT DATE: 20211028
